FAERS Safety Report 4801159-4 (Version None)
Quarter: 2005Q4

REPORT INFORMATION
  Report Type: 
  Country: None (occurrence: None)
  Receive Date: 20051017
  Receipt Date: 20030324
  Transmission Date: 20060501
  Serious: Yes (Death, Life-Threatening, Hospitalization)
  Sender: FDA-Public Use
  Company Number: US-BRISTOL-MYERS SQUIBB COMPANY-12190658

PATIENT
  Age: 68 Year
  Sex: Female
  Weight: 58 kg

DRUGS (16)
  1. CARBOPLATIN [Suspect]
     Indication: NON-SMALL CELL LUNG CANCER
     Route: 042
     Dates: start: 20020522, end: 20020617
  2. PACLITAXEL [Suspect]
     Indication: NON-SMALL CELL LUNG CANCER
     Route: 042
     Dates: start: 20020522, end: 20020617
  3. CETUXIMAB [Suspect]
     Indication: NON-SMALL CELL LUNG CANCER
     Dosage: 400 MG/250 M2
     Route: 042
     Dates: start: 20020522, end: 20020617
  4. SYNTHROID [Concomitant]
  5. SEREVENT [Concomitant]
     Route: 055
  6. FLOVENT [Concomitant]
     Route: 055
  7. COMBIVENT [Concomitant]
     Route: 055
  8. TRIAMTERENE AND HYDROCHLOROTHIAZIDE [Concomitant]
     Route: 048
  9. VITAMIN E [Concomitant]
     Route: 048
  10. ASPIRIN [Concomitant]
     Route: 048
  11. CELEBREX [Concomitant]
     Route: 048
  12. OXYCONTIN [Concomitant]
     Indication: PAIN
  13. OXYCODONE HCL [Concomitant]
     Indication: PAIN
     Route: 048
  14. VICODIN [Concomitant]
     Route: 048
  15. PAXIL [Concomitant]
  16. ALPRAZOLAM [Concomitant]

REACTIONS (7)
  - DEATH [None]
  - DISEASE PROGRESSION [None]
  - ESCHERICHIA BACTERAEMIA [None]
  - LOBAR PNEUMONIA [None]
  - PULMONARY EMBOLISM [None]
  - SEPSIS [None]
  - TACHYCARDIA [None]
